FAERS Safety Report 25140540 (Version 1)
Quarter: 2025Q1

REPORT INFORMATION
  Report Type: Spontaneous
  Country: FR (occurrence: FR)
  Receive Date: 20250331
  Receipt Date: 20250331
  Transmission Date: 20250408
  Serious: Yes (Death, Hospitalization)
  Sender: MYLAN
  Company Number: None

PATIENT
  Age: 84 Year
  Sex: Female

DRUGS (48)
  1. ARIPIPRAZOLE [Suspect]
     Active Substance: ARIPIPRAZOLE
     Indication: Product used for unknown indication
     Dates: start: 20240911, end: 20240911
  2. ARIPIPRAZOLE [Suspect]
     Active Substance: ARIPIPRAZOLE
     Route: 048
     Dates: start: 20240911, end: 20240911
  3. ARIPIPRAZOLE [Suspect]
     Active Substance: ARIPIPRAZOLE
     Route: 048
     Dates: start: 20240911, end: 20240911
  4. ARIPIPRAZOLE [Suspect]
     Active Substance: ARIPIPRAZOLE
     Dates: start: 20240911, end: 20240911
  5. LAMOTRIGINE [Suspect]
     Active Substance: LAMOTRIGINE
     Indication: Product used for unknown indication
     Dates: start: 20240911, end: 20240911
  6. LAMOTRIGINE [Suspect]
     Active Substance: LAMOTRIGINE
     Route: 048
     Dates: start: 20240911, end: 20240911
  7. LAMOTRIGINE [Suspect]
     Active Substance: LAMOTRIGINE
     Route: 048
     Dates: start: 20240911, end: 20240911
  8. LAMOTRIGINE [Suspect]
     Active Substance: LAMOTRIGINE
     Dates: start: 20240911, end: 20240911
  9. POLYETHYLENE GLYCOLS [Suspect]
     Active Substance: POLYETHYLENE GLYCOLS
     Indication: Product used for unknown indication
     Dates: start: 20240911, end: 20240911
  10. POLYETHYLENE GLYCOLS [Suspect]
     Active Substance: POLYETHYLENE GLYCOLS
     Route: 048
     Dates: start: 20240911, end: 20240911
  11. POLYETHYLENE GLYCOLS [Suspect]
     Active Substance: POLYETHYLENE GLYCOLS
     Route: 048
     Dates: start: 20240911, end: 20240911
  12. POLYETHYLENE GLYCOLS [Suspect]
     Active Substance: POLYETHYLENE GLYCOLS
     Dates: start: 20240911, end: 20240911
  13. PANTOPRAZOLE [Suspect]
     Active Substance: PANTOPRAZOLE
     Indication: Product used for unknown indication
     Dates: start: 20240911, end: 20240911
  14. PANTOPRAZOLE [Suspect]
     Active Substance: PANTOPRAZOLE
     Route: 048
     Dates: start: 20240911, end: 20240911
  15. PANTOPRAZOLE [Suspect]
     Active Substance: PANTOPRAZOLE
     Route: 048
     Dates: start: 20240911, end: 20240911
  16. PANTOPRAZOLE [Suspect]
     Active Substance: PANTOPRAZOLE
     Dates: start: 20240911, end: 20240911
  17. PERINDOPRIL [Suspect]
     Active Substance: PERINDOPRIL
     Indication: Product used for unknown indication
     Dates: start: 20240911, end: 20240911
  18. PERINDOPRIL [Suspect]
     Active Substance: PERINDOPRIL
     Route: 048
     Dates: start: 20240911, end: 20240911
  19. PERINDOPRIL [Suspect]
     Active Substance: PERINDOPRIL
     Route: 048
     Dates: start: 20240911, end: 20240911
  20. PERINDOPRIL [Suspect]
     Active Substance: PERINDOPRIL
     Dates: start: 20240911, end: 20240911
  21. PREGABALIN [Suspect]
     Active Substance: PREGABALIN
     Indication: Product used for unknown indication
     Dates: start: 20240911, end: 20240911
  22. PREGABALIN [Suspect]
     Active Substance: PREGABALIN
     Route: 048
     Dates: start: 20240911, end: 20240911
  23. PREGABALIN [Suspect]
     Active Substance: PREGABALIN
     Route: 048
     Dates: start: 20240911, end: 20240911
  24. PREGABALIN [Suspect]
     Active Substance: PREGABALIN
     Dates: start: 20240911, end: 20240911
  25. RILMENIDINE [Suspect]
     Active Substance: RILMENIDINE
     Indication: Product used for unknown indication
     Dates: start: 20240911, end: 20240911
  26. RILMENIDINE [Suspect]
     Active Substance: RILMENIDINE
     Route: 048
     Dates: start: 20240911, end: 20240911
  27. RILMENIDINE [Suspect]
     Active Substance: RILMENIDINE
     Route: 048
     Dates: start: 20240911, end: 20240911
  28. RILMENIDINE [Suspect]
     Active Substance: RILMENIDINE
     Dates: start: 20240911, end: 20240911
  29. PHLOROGLUCINOL [Suspect]
     Active Substance: PHLOROGLUCINOL
     Indication: Product used for unknown indication
     Dates: start: 20240911, end: 20240911
  30. PHLOROGLUCINOL [Suspect]
     Active Substance: PHLOROGLUCINOL
     Route: 048
     Dates: start: 20240911, end: 20240911
  31. PHLOROGLUCINOL [Suspect]
     Active Substance: PHLOROGLUCINOL
     Route: 048
     Dates: start: 20240911, end: 20240911
  32. PHLOROGLUCINOL [Suspect]
     Active Substance: PHLOROGLUCINOL
     Dates: start: 20240911, end: 20240911
  33. HYDROCHLOROTHIAZIDE [Suspect]
     Active Substance: HYDROCHLOROTHIAZIDE
     Indication: Product used for unknown indication
     Dates: start: 20240911, end: 20240911
  34. HYDROCHLOROTHIAZIDE [Suspect]
     Active Substance: HYDROCHLOROTHIAZIDE
     Route: 048
     Dates: start: 20240911, end: 20240911
  35. HYDROCHLOROTHIAZIDE [Suspect]
     Active Substance: HYDROCHLOROTHIAZIDE
     Route: 048
     Dates: start: 20240911, end: 20240911
  36. HYDROCHLOROTHIAZIDE [Suspect]
     Active Substance: HYDROCHLOROTHIAZIDE
     Dates: start: 20240911, end: 20240911
  37. LOXAPINE [Suspect]
     Active Substance: LOXAPINE
     Indication: Product used for unknown indication
     Dates: start: 20240911, end: 20240911
  38. LOXAPINE [Suspect]
     Active Substance: LOXAPINE
     Route: 048
     Dates: start: 20240911, end: 20240911
  39. LOXAPINE [Suspect]
     Active Substance: LOXAPINE
     Route: 048
     Dates: start: 20240911, end: 20240911
  40. LOXAPINE [Suspect]
     Active Substance: LOXAPINE
     Dates: start: 20240911, end: 20240911
  41. NICARDIPINE HYDROCHLORIDE [Suspect]
     Active Substance: NICARDIPINE HYDROCHLORIDE
     Indication: Product used for unknown indication
     Dates: start: 20240911, end: 20240911
  42. NICARDIPINE HYDROCHLORIDE [Suspect]
     Active Substance: NICARDIPINE HYDROCHLORIDE
     Route: 048
     Dates: start: 20240911, end: 20240911
  43. NICARDIPINE HYDROCHLORIDE [Suspect]
     Active Substance: NICARDIPINE HYDROCHLORIDE
     Route: 048
     Dates: start: 20240911, end: 20240911
  44. NICARDIPINE HYDROCHLORIDE [Suspect]
     Active Substance: NICARDIPINE HYDROCHLORIDE
     Dates: start: 20240911, end: 20240911
  45. MINERAL OIL [Suspect]
     Active Substance: MINERAL OIL
     Indication: Product used for unknown indication
     Dates: start: 20240911, end: 20240911
  46. MINERAL OIL [Suspect]
     Active Substance: MINERAL OIL
     Route: 048
     Dates: start: 20240911, end: 20240911
  47. MINERAL OIL [Suspect]
     Active Substance: MINERAL OIL
     Route: 048
     Dates: start: 20240911, end: 20240911
  48. MINERAL OIL [Suspect]
     Active Substance: MINERAL OIL
     Dates: start: 20240911, end: 20240911

REACTIONS (4)
  - Pneumonia aspiration [Fatal]
  - Wrong patient [Fatal]
  - Product administration error [Fatal]
  - Vomiting [Recovered/Resolved]

NARRATIVE: CASE EVENT DATE: 20240911
